FAERS Safety Report 5837920-7 (Version None)
Quarter: 2008Q3

REPORT INFORMATION
  Report Type: 
  Country: None (occurrence: None)
  Receive Date: 20080808
  Receipt Date: 20080729
  Transmission Date: 20090109
  Serious: Yes (Other)
  Sender: FDA-Public Use
  Company Number: CA-JNJFOC-20080404907

PATIENT
  Sex: Female
  Weight: 68 kg

DRUGS (9)
  1. REMICADE [Suspect]
     Dosage: 2 INFUSIONS ON UNSPECIFIED DATES
     Route: 042
  2. REMICADE [Suspect]
     Dosage: 2 INFUSIONS ON UNSPECIFIED DATES
     Route: 042
  3. REMICADE [Suspect]
     Dosage: 2 INFUSIONS ON UNSPECIFIED DATES
     Route: 042
  4. REMICADE [Suspect]
     Indication: COLITIS ULCERATIVE
     Dosage: 2 INFUSIONS ON UNSPECIFIED DATES
     Route: 042
  5. SYNTHROID [Concomitant]
     Route: 048
  6. ACTONEL [Concomitant]
     Route: 048
  7. PREDNISOLONE [Concomitant]
     Route: 048
  8. IRON REPLACEMENT [Concomitant]
     Route: 048
  9. FOLIC ACID [Concomitant]
     Route: 048

REACTIONS (1)
  - EPIDERMOLYSIS BULLOSA [None]
